FAERS Safety Report 24114189 (Version 1)
Quarter: 2024Q3

REPORT INFORMATION
  Report Type: Other
  Country: GB (occurrence: GB)
  Receive Date: 20240720
  Receipt Date: 20240720
  Transmission Date: 20241017
  Serious: Yes (Other)
  Sender: MACLEODS
  Company Number: None

PATIENT
  Age: 18 Year
  Sex: Male

DRUGS (2)
  1. ESCITALOPRAM [Suspect]
     Active Substance: ESCITALOPRAM OXALATE
     Indication: Depression
     Dosage: STARTED AT 5MG THEN 10MG NOW 20MG THE MAX
     Route: 065
     Dates: start: 20240210
  2. Ferfolic [Concomitant]
     Indication: Blood folate decreased
     Dates: start: 20240703

REACTIONS (2)
  - Medication error [Unknown]
  - Ejaculation delayed [Not Recovered/Not Resolved]
